FAERS Safety Report 7722093-6 (Version None)
Quarter: 2011Q3

REPORT INFORMATION
  Report Type: 
  Country: None (occurrence: None)
  Receive Date: 20110831
  Receipt Date: 20110826
  Transmission Date: 20111222
  Serious: Yes (Hospitalization, Other)
  Sender: FDA-Public Use
  Company Number: PHHO2011GB12763

PATIENT
  Sex: Male
  Weight: 76.4 kg

DRUGS (4)
  1. TASIGNA [Suspect]
     Indication: CHRONIC MYELOID LEUKAEMIA
     Dosage: 300 MG, BID
     Route: 048
     Dates: start: 20110627, end: 20110730
  2. TASIGNA [Suspect]
     Dosage: 300 MG, BID
     Route: 048
  3. TASIGNA [Suspect]
     Dosage: 300 MG, QD
     Route: 048
     Dates: start: 20110731, end: 20110731
  4. FLUOXETINE [Concomitant]
     Indication: DEPRESSION
     Dosage: 20 MG, QD
     Route: 048
     Dates: start: 20110701

REACTIONS (13)
  - ABDOMINAL PAIN [None]
  - PENIS DISORDER [None]
  - EPISTAXIS [None]
  - OEDEMA GENITAL [None]
  - FATIGUE [None]
  - ASTHENIA [None]
  - HEADACHE [None]
  - OROPHARYNGEAL PAIN [None]
  - NAUSEA [None]
  - COUGH [None]
  - BONE PAIN [None]
  - DRY MOUTH [None]
  - SKIN FISSURES [None]
